FAERS Safety Report 13513677 (Version 1)
Quarter: 2017Q2

REPORT INFORMATION
  Report Type: Spontaneous
  Country: GB (occurrence: GB)
  Receive Date: 20170504
  Receipt Date: 20170504
  Transmission Date: 20170830
  Serious: Yes (Other)
  Sender: FDA-Public Use
  Company Number: GB-ACCORD-050904

PATIENT
  Sex: Female

DRUGS (3)
  1. TRIMETHOPRIM/TRIMETHOPRIM LACTATE/TRIMETHOPRIM SULFATE [Suspect]
     Active Substance: TRIMETHOPRIM
     Indication: RHEUMATOID ARTHRITIS
  2. MABTHERA [Suspect]
     Active Substance: RITUXIMAB
     Indication: RHEUMATOID ARTHRITIS
     Route: 042
  3. METHOTREXATE. [Suspect]
     Active Substance: METHOTREXATE
     Indication: RHEUMATOID ARTHRITIS

REACTIONS (4)
  - Contraindicated drug prescribed [Unknown]
  - Alanine aminotransferase increased [Unknown]
  - Off label use [Unknown]
  - Arthritis [Unknown]
